FAERS Safety Report 16958236 (Version 1)
Quarter: 2019Q4

REPORT INFORMATION
  Report Type: Spontaneous
  Country: US (occurrence: US)
  Receive Date: 20191024
  Receipt Date: 20191024
  Transmission Date: 20200122
  Serious: No
  Sender: FDA-Public Use
  Company Number: US-BAUSCH-BL-2019-055608

PATIENT
  Age: 57 Year
  Sex: Male
  Weight: 86.26 kg

DRUGS (3)
  1. BESIVANCE [Suspect]
     Active Substance: BESIFLOXACIN
     Indication: ULCERATIVE KERATITIS
     Route: 047
     Dates: start: 20190918
  2. BESIVANCE [Suspect]
     Active Substance: BESIFLOXACIN
     Indication: PRODUCT USE IN UNAPPROVED INDICATION
  3. TOBRAMYCIN OPHTHALMIC SOLUTION USP 0.3% [Suspect]
     Active Substance: TOBRAMYCIN
     Indication: PRODUCT USED FOR UNKNOWN INDICATION
     Route: 047
     Dates: start: 20190918

REACTIONS (6)
  - Headache [Not Recovered/Not Resolved]
  - Hyperhidrosis [Not Recovered/Not Resolved]
  - Sinus pain [Not Recovered/Not Resolved]
  - Product use in unapproved indication [Unknown]
  - Rhinalgia [Not Recovered/Not Resolved]
  - Eye pain [Not Recovered/Not Resolved]

NARRATIVE: CASE EVENT DATE: 201909
